FAERS Safety Report 7548854-4 (Version None)
Quarter: 2011Q2

REPORT INFORMATION
  Report Type: 
  Country: None (occurrence: None)
  Receive Date: 20110615
  Receipt Date: 20110120
  Transmission Date: 20111010
  Serious: Yes (Hospitalization)
  Sender: FDA-Public Use
  Company Number: US-BAYER-2010-002523

PATIENT
  Age: 41 Year
  Sex: Female
  Weight: 80.726 kg

DRUGS (22)
  1. YASMIN [Suspect]
     Indication: CONTRACEPTION
     Dosage: UNK
     Dates: start: 20030301, end: 20100201
  2. DROSPIRENONE AND ETHINYL ESTRADIOL [Suspect]
     Dosage: UNK
     Dates: start: 20090101
  3. SYNTHROID [Concomitant]
     Indication: HYPERTHYROIDISM
     Dosage: UNK
     Dates: start: 20020101, end: 20100101
  4. LEVOXYL [Concomitant]
     Dosage: UNK UNK, QD
     Route: 048
  5. ALLEGRA [Concomitant]
     Dosage: 180 MG, QD
     Route: 048
  6. LISINOPRIL [Concomitant]
  7. DROSPIRENONE AND ETHINYL ESTRADIOL [Suspect]
     Indication: CONTRACEPTION
     Dosage: UNK
     Dates: start: 20030301, end: 20100201
  8. ACIPHEX [Concomitant]
     Dosage: 20 MG, UNK
     Route: 048
  9. MICARDIS [Concomitant]
     Indication: DIURETIC THERAPY
  10. NAPROXEN (ALEVE) [Concomitant]
     Dosage: UNK
     Dates: start: 20020101, end: 20100101
  11. LEVACET [Concomitant]
     Indication: HEADACHE
     Dosage: UNK
     Dates: start: 20080101, end: 20100101
  12. YAZ [Suspect]
     Indication: CONTRACEPTION
     Dosage: UNK
     Dates: start: 20030301, end: 20100201
  13. NAPROXEN [Concomitant]
     Dosage: UNK
     Dates: start: 20020101, end: 20100101
  14. BENICAR [Concomitant]
  15. AMPICILLIN SODIUM [Concomitant]
  16. TETRACYCLINE [Concomitant]
  17. HYDROCHLOROTHIAZIDE [Concomitant]
     Indication: DIURETIC THERAPY
     Dosage: UNK
     Dates: start: 20070101, end: 20100101
  18. MICARDIS [Concomitant]
     Indication: BLOOD PRESSURE INADEQUATELY CONTROLLED
     Dosage: 80 ?G, QD
     Dates: start: 20070101, end: 20100101
  19. JANUVIA [Concomitant]
     Dosage: UNK UNK, QD
     Route: 048
  20. JANUVIA [Concomitant]
     Indication: DIABETES MELLITUS
     Dosage: UNK
     Dates: start: 20090101
  21. ALLEGRA [Concomitant]
     Indication: MULTIPLE ALLERGIES
     Dosage: UNK
     Dates: start: 20090101
  22. MOTRIN [Concomitant]
     Dosage: UNK
     Dates: start: 20020101, end: 20100101

REACTIONS (3)
  - PAIN [None]
  - CHOLECYSTITIS CHRONIC [None]
  - GALLBLADDER DISORDER [None]
